FAERS Safety Report 15029613 (Version 1)
Quarter: 2018Q2

REPORT INFORMATION
  Report Type: Report from Study
  Country: None (occurrence: JP)
  Receive Date: 20180619
  Receipt Date: 20180619
  Transmission Date: 20180711
  Serious: Yes (Death)
  Sender: FDA-Public Use
  Company Number: JP-ABBVIE-17S-087-2091981-00

PATIENT
  Age: 82 Year
  Sex: Male
  Weight: 51 kg

DRUGS (11)
  1. CLOPIDOGREL SULFATE [Concomitant]
     Active Substance: CLOPIDOGREL BISULFATE
     Indication: CHRONIC HEPATITIS C
     Route: 048
  2. MEMANTINE HYDROCHLORIDE. [Concomitant]
     Active Substance: MEMANTINE HYDROCHLORIDE
     Indication: CHRONIC HEPATITIS C
     Route: 048
  3. VIEKIRAX [Suspect]
     Active Substance: OMBITASVIR\PARITAPREVIR\RITONAVIR
     Indication: VIRAEMIA
  4. REBETOL [Suspect]
     Active Substance: RIBAVIRIN
     Indication: VIRAEMIA
  5. IRBESARTAN/ AMLODIPINE BESILATE [Concomitant]
     Indication: CHRONIC HEPATITIS C
     Route: 048
  6. VIEKIRAX [Suspect]
     Active Substance: OMBITASVIR\PARITAPREVIR\RITONAVIR
     Indication: CHRONIC HEPATITIS C
     Route: 048
     Dates: start: 20170803, end: 20170816
  7. REBETOL [Suspect]
     Active Substance: RIBAVIRIN
     Indication: CHRONIC HEPATITIS C
     Route: 048
     Dates: start: 20170802, end: 20170816
  8. TRICHLORMETHIAZIDE [Concomitant]
     Active Substance: TRICHLORMETHIAZIDE
     Indication: CHRONIC HEPATITIS C
     Route: 048
  9. CILOSTAZOL. [Concomitant]
     Active Substance: CILOSTAZOL
     Indication: CHRONIC HEPATITIS C
     Route: 048
  10. ALLOPURINOL. [Concomitant]
     Active Substance: ALLOPURINOL
     Indication: CHRONIC HEPATITIS C
     Route: 048
  11. ESOMEPRAZOLE MAGNESIUM HYDRATE [Concomitant]
     Active Substance: ESOMEPRAZOLE MAGNESIUM
     Indication: CHRONIC HEPATITIS C
     Route: 048

REACTIONS (5)
  - Decreased appetite [Recovered/Resolved]
  - Death [Fatal]
  - Renal disorder [Recovered/Resolved]
  - Anaemia [Not Recovered/Not Resolved]
  - Jaundice [Recovered/Resolved]

NARRATIVE: CASE EVENT DATE: 20170816
